FAERS Safety Report 7750096-4 (Version None)
Quarter: 2011Q3

REPORT INFORMATION
  Report Type: 
  Country: None (occurrence: None)
  Receive Date: 20110914
  Receipt Date: 20110902
  Transmission Date: 20111222
  Serious: Yes (Hospitalization, Other)
  Sender: FDA-Public Use
  Company Number: US-BAYER-201037781NA

PATIENT
  Age: 20 Year
  Sex: Female
  Weight: 58.957 kg

DRUGS (4)
  1. YASMIN [Suspect]
     Indication: PRODUCT USED FOR UNKNOWN INDICATION
     Dosage: UNK
     Route: 048
     Dates: start: 20030228, end: 20040201
  2. YAZ [Suspect]
     Indication: MENSTRUATION IRREGULAR
  3. YASMIN [Suspect]
     Indication: MENSTRUATION IRREGULAR
  4. YAZ [Suspect]
     Indication: PRODUCT USED FOR UNKNOWN INDICATION
     Dosage: UNK
     Route: 048
     Dates: start: 20080101, end: 20090101

REACTIONS (11)
  - ANXIETY [None]
  - GALLBLADDER INJURY [None]
  - ABDOMINAL PAIN UPPER [None]
  - IRRITABLE BOWEL SYNDROME [None]
  - ABDOMINAL PAIN [None]
  - MENTAL DISORDER [None]
  - CHOLELITHIASIS [None]
  - CHOLECYSTITIS CHRONIC [None]
  - CONSTIPATION [None]
  - DIARRHOEA [None]
  - DEPRESSION [None]
